FAERS Safety Report 9216164 (Version 1)
Quarter: 2013Q2

REPORT INFORMATION
  Report Type: Spontaneous
  Country: IN (occurrence: None)
  Receive Date: 20130402
  Receipt Date: 20130402
  Transmission Date: 20140414
  Serious: Yes (Other)
  Sender: FDA-Public Use
  Company Number: UCM201303-000019

PATIENT
  Age: 60 Year
  Sex: Male

DRUGS (9)
  1. LAMOTRIGINE [Suspect]
  2. TOPIRAMAE (TOPIRAMATE) (TOPIRAMATE) [Suspect]
  3. DIVALPROEX SODIUM [Suspect]
  4. LITHIUM [Suspect]
  5. PHENYTOIN [Suspect]
  6. CARBAMAZEPINE [Suspect]
  7. LEVETIRACETAM [Suspect]
  8. OLANZAPINE [Suspect]
  9. QUETIAPINE [Suspect]

REACTIONS (7)
  - Rash [None]
  - Weight increased [None]
  - Hypertension [None]
  - Stevens-Johnson syndrome [None]
  - Tremor [None]
  - Therapeutic response decreased [None]
  - Drug ineffective [None]
